FAERS Safety Report 4776895-9 (Version None)
Quarter: 2005Q3

REPORT INFORMATION
  Report Type: 
  Country: None (occurrence: None)
  Receive Date: 20050921
  Receipt Date: 20050921
  Transmission Date: 20060218
  Serious: No
  Sender: FDA-Public Use
  Company Number: None

PATIENT
  Age: 5 Year
  Sex: Female

DRUGS (1)
  1. CETIRIZINE HCL [Suspect]
     Dosage: 1 MILLIGRAMS BOTTLE
     Dates: start: 20050301, end: 20050401

REACTIONS (2)
  - ALOPECIA [None]
  - RASH GENERALISED [None]
